FAERS Safety Report 10901674 (Version 1)
Quarter: 2015Q1

REPORT INFORMATION
  Report Type: Spontaneous
  Country: US (occurrence: None)
  Receive Date: 20150303
  Receipt Date: 20150303
  Transmission Date: 20150721
  Serious: Yes (Life-Threatening)
  Sender: FDA-Public Use
  Company Number: None

PATIENT
  Age: 48 Year
  Sex: Female
  Weight: 74.84 kg

DRUGS (5)
  1. RISPERDONE [Suspect]
     Active Substance: RISPERIDONE
  2. PERJETA [Concomitant]
     Active Substance: PERTUZUMAB
  3. VITAMIN D [Concomitant]
     Active Substance: CHOLECALCIFEROL
  4. LATUDA [Suspect]
     Active Substance: LURASIDONE HYDROCHLORIDE
  5. HERCEPTIN [Concomitant]
     Active Substance: TRASTUZUMAB

REACTIONS (3)
  - Metastases to liver [None]
  - Blood prolactin increased [None]
  - Breast cancer metastatic [None]

NARRATIVE: CASE EVENT DATE: 20140723
